FAERS Safety Report 7912899-2 (Version None)
Quarter: 2011Q4

REPORT INFORMATION
  Report Type: 
  Country: None (occurrence: None)
  Receive Date: 20111114
  Receipt Date: 20111108
  Transmission Date: 20120403
  Serious: Yes (Life-Threatening, Hospitalization, Other)
  Sender: FDA-Public Use
  Company Number: US-PFIZER INC-001-0981-980152

PATIENT
  Sex: Male
  Weight: 79 kg

DRUGS (3)
  1. ZITHROMAX [Suspect]
     Indication: CHRONIC OBSTRUCTIVE PULMONARY DISEASE
     Dosage: UNK
     Route: 042
     Dates: start: 19971217, end: 19971218
  2. LIPITOR [Suspect]
     Indication: HYPERLIPIDAEMIA
     Dosage: 10 MG DAILY
     Route: 048
     Dates: start: 19970901, end: 19971217
  3. ZITHROMAX [Suspect]
     Indication: PNEUMONIA

REACTIONS (10)
  - VIRAL INFECTION [None]
  - RHABDOMYOLYSIS [None]
  - BLOOD GLUCOSE INCREASED [None]
  - BLOOD UREA INCREASED [None]
  - CHRONIC OBSTRUCTIVE PULMONARY DISEASE [None]
  - CHEST PAIN [None]
  - PAIN IN EXTREMITY [None]
  - ASTHENIA [None]
  - VOMITING [None]
  - CARBON DIOXIDE INCREASED [None]
